FAERS Safety Report 8192765-0 (Version None)
Quarter: 2012Q1

REPORT INFORMATION
  Report Type: 
  Country: None (occurrence: None)
  Receive Date: 20120308
  Receipt Date: 20120305
  Transmission Date: 20120608
  Serious: Yes (Other)
  Sender: FDA-Public Use
  Company Number: US-PFIZER INC-2012058776

PATIENT
  Sex: Male
  Weight: 77 kg

DRUGS (3)
  1. SINGULAIR [Concomitant]
     Indication: HYPERSENSITIVITY
     Dosage: 10 MG, DAILY
  2. NORVASC [Suspect]
     Indication: HYPERTENSION
     Dosage: 10 MG, DAILY
     Dates: start: 20120301
  3. ACCUPRIL [Concomitant]
     Dosage: 10 MG, 2X/DAY

REACTIONS (1)
  - BLOOD PRESSURE INCREASED [None]
